FAERS Safety Report 14689488 (Version 1)
Quarter: 2018Q1

REPORT INFORMATION
  Report Type: Spontaneous
  Country: NL (occurrence: NL)
  Receive Date: 20180328
  Receipt Date: 20180328
  Transmission Date: 20180509
  Serious: Yes (Congenital Anomaly)
  Sender: FDA-Public Use
  Company Number: NL-TEVA-2018-NL-874587

PATIENT

DRUGS (5)
  1. CYKLOKAPRON [Concomitant]
     Active Substance: TRANEXAMIC ACID
     Route: 065
  2. DAVITAMON [Concomitant]
     Route: 065
  3. FOLIUMZUUR [Concomitant]
     Active Substance: FOLIC ACID
     Route: 065
  4. ESCITALOPRAM [Suspect]
     Active Substance: ESCITALOPRAM OXALATE
     Indication: DEPRESSION
     Dosage: 10 MILLIGRAM DAILY; 1 DD 1
  5. CALCIUMCARBONAAT/COLECALCIFEROL [Concomitant]
     Route: 065

REACTIONS (1)
  - Congenital oral malformation [Unknown]
